FAERS Safety Report 18252360 (Version 1)
Quarter: 2020Q3

REPORT INFORMATION
  Report Type: Spontaneous
  Country: US (occurrence: US)
  Receive Date: 20200910
  Receipt Date: 20200910
  Transmission Date: 20201103
  Serious: No
  Sender: FDA-Public Use
  Company Number: US-FARMAPROD-202006-0871

PATIENT
  Sex: Male

DRUGS (12)
  1. GABAPENTIN. [Concomitant]
     Active Substance: GABAPENTIN
  2. VALACYCLOVIR [Concomitant]
     Active Substance: VALACYCLOVIR HYDROCHLORIDE
  3. TIMOLOL MALEATE. [Concomitant]
     Active Substance: TIMOLOL MALEATE
  4. LEVOTHYROXINE SODIUM. [Concomitant]
     Active Substance: LEVOTHYROXINE SODIUM
  5. OXERVATE [Suspect]
     Active Substance: CENEGERMIN-BKBJ
     Indication: NEUROTROPHIC KERATOPATHY
     Route: 047
     Dates: start: 20200615
  6. DULCOLAX STOOL SOFTENER [Concomitant]
     Active Substance: DOCUSATE SODIUM
  7. MIRALAX [Concomitant]
     Active Substance: POLYETHYLENE GLYCOL 3350
  8. PREDNISONE. [Concomitant]
     Active Substance: PREDNISONE
  9. INDOMETHACIN. [Concomitant]
     Active Substance: INDOMETHACIN
     Dosage: VIAL
  10. ALBUTEROL SULFATE. [Concomitant]
     Active Substance: ALBUTEROL SULFATE
  11. ADVIL [Concomitant]
     Active Substance: IBUPROFEN
  12. BENZONATATE. [Concomitant]
     Active Substance: BENZONATATE

REACTIONS (1)
  - Eye pain [Unknown]
